FAERS Safety Report 24610223 (Version 1)
Quarter: 2024Q4

REPORT INFORMATION
  Report Type: Spontaneous
  Country: NL (occurrence: NL)
  Receive Date: 20241112
  Receipt Date: 20241112
  Transmission Date: 20250115
  Serious: Yes (Other)
  Sender: JUBILANT
  Company Number: None

PATIENT
  Age: 47 Year
  Sex: Female
  Weight: 90 kg

DRUGS (1)
  1. QUETIAPINE FUMARATE [Suspect]
     Active Substance: QUETIAPINE FUMARATE
     Indication: Insomnia
     Dosage: 12.5 MG, ONCE PER DAY, ONE PIECE ONCE A DAY
     Route: 048
     Dates: start: 20240922

REACTIONS (3)
  - Drug dependence [Not Recovered/Not Resolved]
  - Weight increased [Not Recovered/Not Resolved]
  - Libido decreased [Not Recovered/Not Resolved]
